FAERS Safety Report 24764688 (Version 2)
Quarter: 2025Q2

REPORT INFORMATION
  Report Type: Spontaneous
  Country: US (occurrence: US)
  Receive Date: 20241223
  Receipt Date: 20250603
  Transmission Date: 20250717
  Serious: Yes (Other)
  Sender: TEVA
  Company Number: US-TEVA-VS-3276855

PATIENT

DRUGS (1)
  1. TRAMADOL [Suspect]
     Active Substance: TRAMADOL
     Indication: Pain management
     Route: 048

REACTIONS (4)
  - Syncope [Unknown]
  - Abdominal pain upper [Unknown]
  - Hypotension [Unknown]
  - Asthenia [Unknown]

NARRATIVE: CASE EVENT DATE: 20240101
